FAERS Safety Report 5633826-7 (Version None)
Quarter: 2008Q1

REPORT INFORMATION
  Report Type: 
  Country: None (occurrence: None)
  Receive Date: 20080221
  Receipt Date: 20080214
  Transmission Date: 20080703
  Serious: Yes (Disabling, Other)
  Sender: FDA-Public Use
  Company Number: US-GENENTECH-253680

PATIENT
  Sex: Female

DRUGS (2)
  1. AVASTIN [Suspect]
     Indication: GLIOBLASTOMA MULTIFORME
     Dosage: 300 MG, QOW
     Route: 042
     Dates: end: 20071219
  2. IRINOTECAN [Concomitant]
     Indication: ASTROCYTOMA
     Dosage: 200 MG, UNK
     Route: 042

REACTIONS (1)
  - BLINDNESS [None]
